FAERS Safety Report 5156966-8 (Version None)
Quarter: 2006Q4

REPORT INFORMATION
  Report Type: 
  Country: None (occurrence: None)
  Receive Date: 20061124
  Receipt Date: 20061116
  Transmission Date: 20070319
  Serious: Yes (Hospitalization)
  Sender: FDA-Public Use
  Company Number: US-ROCHE-471473

PATIENT
  Age: 56 Year
  Sex: Female

DRUGS (3)
  1. CAPECITABINE [Suspect]
     Indication: RECTAL CANCER
     Dosage: REPORTED AS ^42000^ DURING THE DATES OF 21/8/06 - 7/9/06.  DOSE, ROUTE, FORM AND FREQUENCY REPORTED+
     Route: 048
     Dates: start: 20060821
  2. BEVACIZUMAB [Suspect]
     Indication: RECTAL CANCER
     Dosage: REPORTED AS ^5.00^.  DOSE, FREQUENCY AND ROUTE AS PER PROTOCOL.  GIVEN ON DAY 1 AND DAY 15.
     Route: 065
     Dates: start: 20060821
  3. OXALIPLATIN [Suspect]
     Indication: RECTAL CANCER
     Dosage: REPORTED AS ^85.00^.  DOSE, FREQUENCY AND ROUTE AS PER PROTOCOL.  GIVEN ON DAYS 1 AND 15.
     Route: 065
     Dates: start: 20060821

REACTIONS (3)
  - DIARRHOEA [None]
  - ENTEROCOLITIS INFECTIOUS [None]
  - STAPHYLOCOCCAL INFECTION [None]
